FAERS Safety Report 6129002-4 (Version None)
Quarter: 2009Q1

REPORT INFORMATION
  Report Type: 
  Country: None (occurrence: None)
  Receive Date: 20090324
  Receipt Date: 20090317
  Transmission Date: 20090719
  Serious: Yes (Other)
  Sender: FDA-Public Use
  Company Number: PHHY2009ZA10006

PATIENT
  Sex: Male

DRUGS (4)
  1. DIOVAN [Suspect]
     Indication: HYPERTENSION
  2. CRESTOR [Concomitant]
  3. BISOPROLOL [Concomitant]
  4. ADALAT CC [Concomitant]

REACTIONS (1)
  - DEPRESSED MOOD [None]
